FAERS Safety Report 14579209 (Version 1)
Quarter: 2018Q1

REPORT INFORMATION
  Report Type: Spontaneous
  Country: US (occurrence: US)
  Receive Date: 20180227
  Receipt Date: 20180227
  Transmission Date: 20180509
  Serious: Yes (Hospitalization, Other)
  Sender: FDA-Public Use
  Company Number: US-OTSUKA-DJ20127054

PATIENT

DRUGS (2)
  1. ABILIFY [Suspect]
     Active Substance: ARIPIPRAZOLE
     Indication: DEMENTIA
  2. ABILIFY [Suspect]
     Active Substance: ARIPIPRAZOLE
     Indication: CRYING
     Route: 065
     Dates: start: 201204

REACTIONS (4)
  - Cerebrovascular accident [Unknown]
  - Dysphagia [Unknown]
  - Abnormal behaviour [Unknown]
  - Respiratory failure [Unknown]

NARRATIVE: CASE EVENT DATE: 201204
